FAERS Safety Report 16248189 (Version 1)
Quarter: 2019Q2

REPORT INFORMATION
  Report Type: Spontaneous
  Country: US (occurrence: US)
  Receive Date: 20190428
  Receipt Date: 20190428
  Transmission Date: 20190711
  Serious: No
  Sender: FDA-Public Use
  Company Number: US-SENTYNL THERAPEUTICS, INC.  -2066341

PATIENT
  Age: 51 Year
  Sex: Female

DRUGS (1)
  1. LEVORPHANOL TARTRATE. [Suspect]
     Active Substance: LEVORPHANOL TARTRATE
     Indication: RADICULOPATHY
     Route: 048
     Dates: start: 20180615, end: 20180615

REACTIONS (4)
  - Throat irritation [Not Recovered/Not Resolved]
  - Hot flush [Not Recovered/Not Resolved]
  - Incoherent [Not Recovered/Not Resolved]
  - Impaired driving ability [Not Recovered/Not Resolved]

NARRATIVE: CASE EVENT DATE: 20180615
